FAERS Safety Report 23178761 (Version 1)
Quarter: 2023Q4

REPORT INFORMATION
  Report Type: Spontaneous
  Country: SK (occurrence: SK)
  Receive Date: 20231113
  Receipt Date: 20231113
  Transmission Date: 20240109
  Serious: No
  Sender: FDA-Public Use
  Company Number: SK-WW-2023-230966-LUN

PATIENT
  Age: 70 Year
  Sex: Female

DRUGS (2)
  1. ESZOPICLONE [Suspect]
     Active Substance: ESZOPICLONE
     Indication: Sleep disorder
     Route: 048
  2. VINPOCETINE [Concomitant]
     Active Substance: VINPOCETINE
     Dosage: 10 MG
     Route: 048

REACTIONS (2)
  - Diplopia [Recovered/Resolved]
  - Confusional state [Recovered/Resolved]
